FAERS Safety Report 10175473 (Version 1)
Quarter: 2014Q2

REPORT INFORMATION
  Report Type: Spontaneous
  Country: GB (occurrence: GB)
  Receive Date: 20140515
  Receipt Date: 20140515
  Transmission Date: 20141212
  Serious: Yes (Disabling)
  Sender: FDA-Public Use
  Company Number: GB-B.I. PHARMACEUTICALS,INC./RIDGEFIELD-2014-BI-21180UK

PATIENT
  Age: 74 Year
  Sex: Female

DRUGS (5)
  1. TRAJENTA [Suspect]
     Indication: DIABETES MELLITUS
     Dosage: 5 MG
     Route: 048
     Dates: start: 20140409
  2. AMLODIPINE [Concomitant]
     Dosage: 5 MG
     Route: 048
  3. ATORVASTATIN [Concomitant]
     Dosage: 20 MG
     Route: 048
  4. IRBESARTAN [Concomitant]
     Dosage: 150 MG
     Route: 048
  5. METFORMIN [Concomitant]
     Dosage: 2 G
     Route: 048

REACTIONS (6)
  - Vision blurred [Unknown]
  - Headache [Unknown]
  - Mood altered [Unknown]
  - Dyspnoea [Unknown]
  - Abdominal pain upper [Unknown]
  - Vomiting [Unknown]
